FAERS Safety Report 7819401-4 (Version None)
Quarter: 2011Q4

REPORT INFORMATION
  Report Type: 
  Country: None (occurrence: None)
  Receive Date: 20111018
  Receipt Date: 20110307
  Transmission Date: 20120403
  Serious: No
  Sender: FDA-Public Use
  Company Number: US-ASTRAZENECA-2011SE12944

PATIENT
  Age: 66 Year
  Sex: Male

DRUGS (1)
  1. SYMBICORT [Suspect]
     Indication: CHRONIC OBSTRUCTIVE PULMONARY DISEASE
     Dosage: 160/4,5MCG 2 PUFFS BID
     Route: 055

REACTIONS (2)
  - CHOKING SENSATION [None]
  - DRUG INEFFECTIVE [None]
